FAERS Safety Report 10025575 (Version 2)
Quarter: 2014Q2

REPORT INFORMATION
  Report Type: Spontaneous
  Country: US (occurrence: US)
  Receive Date: 20140320
  Receipt Date: 20140521
  Transmission Date: 20141212
  Serious: No
  Sender: FDA-Public Use
  Company Number: US-009507513-1403USA002187

PATIENT
  Age: 82 Year
  Sex: Female
  Weight: 53.52 kg

DRUGS (3)
  1. OXYTROL FOR WOMEN [Suspect]
     Indication: URINARY INCONTINENCE
     Dosage: UNK, UNKNOWN
     Route: 062
     Dates: start: 20140211, end: 20140226
  2. OXYTROL FOR WOMEN [Suspect]
     Dosage: UNK, UNKNOWN
     Route: 062
     Dates: start: 20140211, end: 20140226
  3. XELODA [Concomitant]
     Indication: BREAST CANCER STAGE IV
     Dosage: UNK, UNKNOWN

REACTIONS (2)
  - Application site rash [Not Recovered/Not Resolved]
  - Pruritus [Unknown]
